FAERS Safety Report 9820731 (Version 2)
Quarter: 2014Q1

REPORT INFORMATION
  Report Type: Spontaneous
  Country: US (occurrence: US)
  Receive Date: 20140116
  Receipt Date: 20140226
  Transmission Date: 20141002
  Serious: Yes (Hospitalization)
  Sender: FDA-Public Use
  Company Number: US-ALLERGAN-1400480US

PATIENT
  Age: 57 Year
  Sex: Female

DRUGS (5)
  1. RESTASIS [Suspect]
     Indication: DRY EYE
     Dosage: UNK
     Route: 047
  2. SYSTANE [Concomitant]
     Indication: DRY EYE
     Route: 047
  3. SYSTANE GELDROPS [Concomitant]
     Indication: DRY EYE
     Dosage: UNK, QHS
  4. A LOT OF MEDICATIONS NOS [Concomitant]
     Indication: PRODUCT USED FOR UNKNOWN INDICATION
  5. A LOT OF HIGH POWERED OPIATES [Concomitant]
     Indication: PRODUCT USED FOR UNKNOWN INDICATION

REACTIONS (5)
  - Photopsia [Unknown]
  - Visual impairment [Recovered/Resolved]
  - Conversion disorder [Unknown]
  - Sleep disorder [Unknown]
  - Eye discharge [Recovered/Resolved]
